FAERS Safety Report 7575726-1 (Version None)
Quarter: 2011Q2

REPORT INFORMATION
  Report Type: 
  Country: None (occurrence: None)
  Receive Date: 20110628
  Receipt Date: 20110616
  Transmission Date: 20111010
  Serious: No
  Sender: FDA-Public Use
  Company Number: US-BIOGENIDEC-2011BI010615

PATIENT
  Sex: Male

DRUGS (1)
  1. TYSABRI [Suspect]
     Indication: MULTIPLE SCLEROSIS
     Route: 042
     Dates: start: 20110120

REACTIONS (8)
  - PSORIASIS [None]
  - ROAD TRAFFIC ACCIDENT [None]
  - JOINT DISLOCATION [None]
  - PRURITUS ALLERGIC [None]
  - HYPERSENSITIVITY [None]
  - ROTATOR CUFF SYNDROME [None]
  - RASH [None]
  - DRUG EFFECT DECREASED [None]
